FAERS Safety Report 23356178 (Version 2)
Quarter: 2024Q1

REPORT INFORMATION
  Report Type: Spontaneous
  Country: RO (occurrence: RO)
  Receive Date: 20240102
  Receipt Date: 20240111
  Transmission Date: 20240410
  Serious: Yes (Other)
  Sender: FDA-Public Use
  Company Number: RO-PFIZER INC-PV202300150921

PATIENT
  Age: 53 Year
  Sex: Male

DRUGS (8)
  1. ADALIMUMAB [Suspect]
     Active Substance: ADALIMUMAB\ISOPROPYL ALCOHOL
     Indication: Arthropathy
     Dosage: 40 MG, 2 WEEKS
     Route: 065
     Dates: start: 200806, end: 201412
  2. ETANERCEPT [Suspect]
     Active Substance: ETANERCEPT
     Indication: Arthropathy
     Dosage: 50 MG, WEEKLY
     Route: 065
     Dates: start: 201501, end: 202008
  3. METHOTREXATE [Suspect]
     Active Substance: METHOTREXATE
     Indication: Psoriatic arthropathy
     Dosage: 15 MG, WEEKLY
     Route: 065
     Dates: start: 200808
  4. METHOTREXATE [Suspect]
     Active Substance: METHOTREXATE
     Indication: Arthropathy
     Dosage: 20 MG, WEEKLY
     Route: 065
     Dates: end: 201309
  5. METHOTREXATE [Suspect]
     Active Substance: METHOTREXATE
     Dosage: UNK
     Route: 065
     Dates: start: 2023
  6. SECUKINUMAB [Suspect]
     Active Substance: SECUKINUMAB
     Indication: Arthropathy
     Dosage: 300 MG, MONTHLY
     Route: 065
     Dates: start: 202101, end: 202301
  7. SULFASALAZINE [Suspect]
     Active Substance: SULFASALAZINE
     Indication: Arthropathy
     Dosage: 2 G, DAILY
     Route: 065
     Dates: start: 201405, end: 201908
  8. XELJANZ [Suspect]
     Active Substance: TOFACITINIB CITRATE
     Indication: Psoriatic arthropathy
     Dosage: 10 MG, QD  (5 MG 1CP, 2X/DAY)
     Route: 065
     Dates: start: 2023

REACTIONS (6)
  - Psoriatic arthropathy [Unknown]
  - C-reactive protein increased [Unknown]
  - Red blood cell sedimentation rate increased [Unknown]
  - Blood glucose increased [Unknown]
  - Haemoglobin decreased [Unknown]
  - Blood glucose increased [Unknown]

NARRATIVE: CASE EVENT DATE: 20230101
